FAERS Safety Report 20868230 (Version 2)
Quarter: 2022Q2

REPORT INFORMATION
  Report Type: Spontaneous
  Country: JO (occurrence: None)
  Receive Date: 20220524
  Receipt Date: 20220607
  Transmission Date: 20220720
  Serious: Yes (Congenital Anomaly, Other)
  Sender: FDA-Public Use
  Company Number: JO-Merck Healthcare KGaA-9323191

PATIENT
  Sex: Female

DRUGS (1)
  1. EUTHYROX [Suspect]
     Active Substance: LEVOTHYROXINE SODIUM
     Indication: Hypothyroidism
     Route: 064

REACTIONS (4)
  - Umbilical cord abnormality [Unknown]
  - Congenital hand malformation [Unknown]
  - Premature baby [Unknown]
  - Foetal exposure during pregnancy [Recovered/Resolved]

NARRATIVE: CASE EVENT DATE: 20210408
